FAERS Safety Report 23894723 (Version 1)
Quarter: 2024Q2

REPORT INFORMATION
  Report Type: Other
  Country: CN (occurrence: None)
  Receive Date: 20240524
  Receipt Date: 20240524
  Transmission Date: 20240716
  Serious: Yes (Death, Other)
  Sender: FDA-Public Use
  Company Number: CN-ROCHE-3566906

PATIENT

DRUGS (16)
  1. RITUXIMAB [Suspect]
     Active Substance: RITUXIMAB
     Indication: Mantle cell lymphoma
     Dosage: DAY 0 (INDUCTION THERAPY)?THE TWO REGIMENS ALTERNATED ONCE IN 1 CYCLE, 21 DAYS FOR 1 CYCLE, FOR A TO
     Route: 042
  2. RITUXIMAB [Suspect]
     Active Substance: RITUXIMAB
     Dosage: DAY 0 (MAINTENANCE TREATMENT)?{/= 8 TIMES
     Route: 042
  3. RITUXIMAB [Suspect]
     Active Substance: RITUXIMAB
     Dosage: DAY 0 (INDUCTION THERAPY) IR-BAP?EVERY 28 DAYS WAS A CYCLE, FOR A TOTAL OF 6 CYCLES
     Route: 042
  4. RITUXIMAB [Suspect]
     Active Substance: RITUXIMAB
     Dosage: IR (MAINTENANCE TREATMENT)?2 TIMES
     Route: 042
  5. CYCLOPHOSPHAMIDE [Suspect]
     Active Substance: CYCLOPHOSPHAMIDE
     Indication: Mantle cell lymphoma
     Dosage: DAY 1 (INDUCTION THERAPY)?THE TWO REGIMENS ALTERNATED ONCE IN 1 CYCLE, 21 DAYS FOR 1 CYCLE, FOR A TO
     Route: 042
  6. DOXORUBICIN [Suspect]
     Active Substance: DOXORUBICIN
     Indication: Mantle cell lymphoma
     Dosage: DAY 1 (INDUCTION THERAPY)?THE TWO REGIMENS ALTERNATED ONCE IN 1 CYCLE, 21 DAYS FOR 1 CYCLE, FOR A TO
     Route: 042
  7. VINCRISTINE [Suspect]
     Active Substance: VINCRISTINE
     Indication: Mantle cell lymphoma
     Dosage: DAY 1 (MAXIMUM DOSE 2 MG) (INDUCTION THERAPY)?THE TWO REGIMENS ALTERNATED ONCE IN 1 CYCLE, 21 DAYS F
     Route: 042
  8. PREDNISONE [Suspect]
     Active Substance: PREDNISONE
     Indication: Mantle cell lymphoma
     Dosage: DAY 1 - 5 (INDUCTION THERAPY)?THE TWO REGIMENS ALTERNATED ONCE IN 1 CYCLE, 21 DAYS FOR 1 CYCLE, FOR
     Route: 048
  9. PREDNISONE [Suspect]
     Active Substance: PREDNISONE
     Dosage: 100 MG/D?D1-5 (INDUCTION THERAPY) IR-BAP?EVERY 28 DAYS WAS A CYCLE, FOR A TOTAL OF 6 CYCLES
     Route: 048
  10. DEXAMETHASONE [Suspect]
     Active Substance: DEXAMETHASONE
     Indication: Mantle cell lymphoma
     Dosage: DAY 1-4 (INDUCTION THERAPY)?THE TWO REGIMENS ALTERNATED ONCE IN 1 CYCLE, 21 DAYS FOR 1 CYCLE, FOR A
     Route: 042
  11. CISPLATIN [Suspect]
     Active Substance: CISPLATIN
     Indication: Mantle cell lymphoma
     Dosage: DAY 24 H CONTINUOUS INFUSION, D1 (INDUCTION THERAPY)?THE TWO REGIMENS ALTERNATED ONCE IN 1 CYCLE, 21
     Route: 042
  12. CYTARABINE [Suspect]
     Active Substance: CYTARABINE
     Indication: Mantle cell lymphoma
     Dosage: 2 G/M2?DAY 2 (INDUCTION THERAPY)?THE TWO REGIMENS ALTERNATED ONCE IN 1 CYCLE, 21 DAYS FOR 1 CYCLE, F
     Route: 042
  13. CYTARABINE [Suspect]
     Active Substance: CYTARABINE
     Dosage: D1-3 (INDUCTION THERAPY) IR-BAP?EVERY 28 DAYS WAS A CYCLE, FOR A TOTAL OF 6 CYCLES
     Route: 042
  14. BENDAMUSTINE [Suspect]
     Active Substance: BENDAMUSTINE
     Indication: Mantle cell lymphoma
     Dosage: D1-2 (INDUCTION THERAPY) IR-BAP?EVERY 28 DAYS WAS A CYCLE, FOR A TOTAL OF 6 CYCLES
     Route: 042
  15. IBRUTINIB [Suspect]
     Active Substance: IBRUTINIB
     Indication: Mantle cell lymphoma
     Dosage: 560 MG/D?EVERY 28 DAYS WAS A CYCLE, FOR A TOTAL OF 6 CYCLES
     Route: 048
  16. IBRUTINIB [Suspect]
     Active Substance: IBRUTINIB
     Dosage: IR (MAINTENANCE THERAPY)?1 YEAR
     Route: 048

REACTIONS (18)
  - Lymphoma [Fatal]
  - Pneumonia [Fatal]
  - Pulmonary embolism [Fatal]
  - Hepatic failure [Fatal]
  - Pneumonia [Fatal]
  - Thrombocytopenia [Fatal]
  - COVID-19 [Fatal]
  - Lymphopenia [Unknown]
  - Anaemia [Unknown]
  - Neutropenia [Unknown]
  - Liver injury [Unknown]
  - Haematotoxicity [Unknown]
  - Leukopenia [Unknown]
  - Lymphopenia [Unknown]
  - Infection [Unknown]
  - Infusion related reaction [Unknown]
  - Cardiotoxicity [Unknown]
  - Gastrointestinal disorder [Unknown]
